FAERS Safety Report 17295428 (Version 1)
Quarter: 2020Q1

REPORT INFORMATION
  Report Type: Spontaneous
  Country: CN (occurrence: CN)
  Receive Date: 20200121
  Receipt Date: 20200121
  Transmission Date: 20200409
  Serious: Yes (Hospitalization)
  Sender: FDA-Public Use
  Company Number: CN-PFIZER INC-2020025773

PATIENT
  Age: 72 Year
  Sex: Female
  Weight: 47 kg

DRUGS (9)
  1. ERTONGSHU [Suspect]
     Active Substance: BENZBROMARONE
     Indication: GOUT
     Dosage: 1 DF, 1X/DAY
     Route: 048
     Dates: start: 20200103, end: 20200106
  2. FUROSEMIDE. [Concomitant]
     Active Substance: FUROSEMIDE
     Indication: ANTICOAGULANT THERAPY
     Dosage: 20 MG, 1X/DAY
  3. BOSENTAN. [Concomitant]
     Active Substance: BOSENTAN
     Dosage: 125 MG, 2X/DAY
  4. SPIRONOLACTONE. [Concomitant]
     Active Substance: SPIRONOLACTONE
     Indication: ANTICOAGULANT THERAPY
     Dosage: 40 MG, 1X/DAY
  5. VIAGRA [Suspect]
     Active Substance: SILDENAFIL CITRATE
     Indication: PULMONARY ARTERIAL HYPERTENSION
     Dosage: 0.5 DF, 2X/DAY
     Route: 048
     Dates: start: 20200103, end: 20200106
  6. WARFARIN SODIUM. [Concomitant]
     Active Substance: WARFARIN SODIUM
     Indication: ANTICOAGULANT THERAPY
     Dosage: 0.75 DF, 1X/DAY
     Route: 048
     Dates: start: 20200102, end: 20200110
  7. ROSUVASTATIN CALCIUM. [Concomitant]
     Active Substance: ROSUVASTATIN CALCIUM
     Indication: ARTERIOSCLEROSIS
     Dosage: 1 DF, 1X/DAY
     Route: 048
     Dates: start: 20200102, end: 20200110
  8. BOSENTAN. [Concomitant]
     Active Substance: BOSENTAN
     Dosage: 125 MG, 2X/DAY (0.5-0-0.5-0)
  9. MILRINONE [Concomitant]
     Active Substance: MILRINONE
     Indication: PULMONARY ARTERIAL PRESSURE INCREASED
     Dosage: 10 UG, UNK

REACTIONS (3)
  - Diarrhoea [Recovering/Resolving]
  - Product use in unapproved indication [Unknown]
  - Off label use [Unknown]

NARRATIVE: CASE EVENT DATE: 20200103
